FAERS Safety Report 9256224 (Version 1)
Quarter: 2013Q2

REPORT INFORMATION
  Report Type: Spontaneous
  Country: US (occurrence: US)
  Receive Date: 20130425
  Receipt Date: 20130425
  Transmission Date: 20140414
  Serious: No
  Sender: FDA-Public Use
  Company Number: US-AMGEN-USASP2013002343

PATIENT
  Sex: Female

DRUGS (2)
  1. NEULASTA [Suspect]
     Indication: PRODUCT USED FOR UNKNOWN INDICATION
     Dosage: 6 MG, UNK
     Dates: start: 20130111
  2. CHEMOTHERAPEUTICS [Concomitant]
     Dosage: UNK
     Dates: start: 20130110

REACTIONS (1)
  - Musculoskeletal pain [Not Recovered/Not Resolved]
